FAERS Safety Report 8354414 (Version 2)
Quarter: 2013Q1

REPORT INFORMATION
  Report Type: Report from Study
  Country: BR (occurrence: BR)
  Receive Date: 20120125
  Receipt Date: 20130130
  Transmission Date: 20140127
  Serious: Yes (Other)
  Sender: FDA-Public Use
  Company Number: BR-ROCHE-613232

PATIENT
  Age: 48 Year
  Sex: Female
  Weight: 88 kg

DRUGS (10)
  1. RITUXIMAB [Suspect]
     Indication: RHEUMATOID ARTHRITIS
     Route: 042
     Dates: start: 200710, end: 200710
  2. RITUXIMAB [Suspect]
     Dosage: FORM: INFUSION, FREQUENCY REPORTED AS: 2 INFUSIONS
     Route: 042
     Dates: start: 20080916, end: 20081006
  3. TANDRILAX [Concomitant]
     Indication: PAIN
  4. DIPYRONE [Concomitant]
  5. OMEPRAZOLE [Concomitant]
     Route: 065
  6. RIVOTRIL [Concomitant]
     Route: 048
  7. PAMELOR [Concomitant]
  8. LYRICA [Concomitant]
     Route: 065
  9. CYMBALTA [Concomitant]
     Route: 065
  10. PREDNISONE [Concomitant]
     Dosage: DOSE 5MG-10 MG
     Route: 065

REACTIONS (7)
  - Cataract [Not Recovered/Not Resolved]
  - Pain in extremity [Not Recovered/Not Resolved]
  - Alopecia [Not Recovered/Not Resolved]
  - Rheumatoid lung [Recovered/Resolved]
  - Coordination abnormal [Recovered/Resolved]
  - Gastritis [Recovered/Resolved]
  - Hypertension [Recovered/Resolved]
